FAERS Safety Report 4941136-6 (Version None)
Quarter: 2006Q1

REPORT INFORMATION
  Report Type: 
  Country: None (occurrence: None)
  Receive Date: 20060313
  Receipt Date: 20060303
  Transmission Date: 20060701
  Serious: Yes (Other)
  Sender: FDA-Public Use
  Company Number: JP-GLAXOSMITHKLINE-B0414418A

PATIENT
  Age: 26 Year
  Sex: Female
  Weight: 61 kg

DRUGS (8)
  1. BUPROPION HYDROCHLORIDE [Suspect]
     Indication: DEPRESSION
     Route: 048
     Dates: start: 20060208
  2. MYSLEE [Concomitant]
     Route: 048
     Dates: start: 20060126
  3. SKIN MEDICATION-NO REFERENCE [Concomitant]
     Route: 065
     Dates: start: 20060219, end: 20060219
  4. UNSPECIFIED DRUG [Concomitant]
     Route: 062
     Dates: start: 20060219, end: 20060219
  5. TEPRENONE [Concomitant]
     Dates: start: 20060227
  6. METOCLOPRAMIDE [Concomitant]
     Dates: start: 20060227
  7. FAMOTIDINE [Concomitant]
     Dates: start: 20060227
  8. UNSPECIFIED DRUG [Concomitant]

REACTIONS (3)
  - ALANINE AMINOTRANSFERASE INCREASED [None]
  - ASPARTATE AMINOTRANSFERASE INCREASED [None]
  - HEPATIC FUNCTION ABNORMAL [None]
